FAERS Safety Report 24895071 (Version 3)
Quarter: 2025Q2

REPORT INFORMATION
  Report Type: Report from Study
  Country: US (occurrence: US)
  Receive Date: 20250128
  Receipt Date: 20250416
  Transmission Date: 20250716
  Serious: No
  Sender: SUNOVION
  Company Number: US-SUMITOMO PHARMA SWITZERLAND GMBH-2025SPA000562

PATIENT

DRUGS (10)
  1. ORGOVYX [Suspect]
     Active Substance: RELUGOLIX
     Indication: Prostate cancer
     Dosage: 360 MG, SINGLE
     Route: 048
  2. ORGOVYX [Suspect]
     Active Substance: RELUGOLIX
     Dosage: 120 MG, QD
     Route: 048
     Dates: start: 202409
  3. DICLOFENAC SODIUM [Concomitant]
     Active Substance: DICLOFENAC SODIUM
     Route: 048
  4. ROPINIROLE [Concomitant]
     Active Substance: ROPINIROLE
     Route: 048
  5. TAMSULOSIN [Concomitant]
     Active Substance: TAMSULOSIN
     Route: 048
  6. VALSARTAN [Concomitant]
     Active Substance: VALSARTAN
     Route: 048
  7. WIXELA INHUB [Concomitant]
     Active Substance: FLUTICASONE PROPIONATE\SALMETEROL XINAFOATE
     Route: 055
  8. LORATADINE [Concomitant]
     Active Substance: LORATADINE
     Route: 048
  9. PREVACID [Concomitant]
     Active Substance: LANSOPRAZOLE
     Route: 048
  10. Aerosol Pow [Concomitant]
     Route: 055

REACTIONS (11)
  - Nocturia [Unknown]
  - Brain fog [Unknown]
  - Sleep disorder [Unknown]
  - Nausea [Unknown]
  - Dizziness [Unknown]
  - Anaemia [Unknown]
  - Fatigue [Unknown]
  - Weight increased [Unknown]
  - Hyperhidrosis [Unknown]
  - Hot flush [Unknown]
  - Asthenia [Unknown]
